FAERS Safety Report 21441657 (Version 1)
Quarter: 2022Q4

REPORT INFORMATION
  Report Type: Spontaneous
  Country: US (occurrence: US)
  Receive Date: 20221011
  Receipt Date: 20221011
  Transmission Date: 20230113
  Serious: No
  Sender: FDA-Public Use
  Company Number: US-SA-SAC20221007000554

PATIENT
  Sex: Female

DRUGS (2)
  1. AUBAGIO [Suspect]
     Active Substance: TERIFLUNOMIDE
     Indication: Multiple sclerosis
     Dosage: 7 MG, QD
     Route: 048
     Dates: start: 20201210
  2. AUBAGIO [Suspect]
     Active Substance: TERIFLUNOMIDE
     Indication: Tardive dyskinesia

REACTIONS (3)
  - Vertigo [Unknown]
  - Balance disorder [Unknown]
  - Unintentional use for unapproved indication [Unknown]
